FAERS Safety Report 6359820-9 (Version None)
Quarter: 2009Q3

REPORT INFORMATION
  Report Type: 
  Country: None (occurrence: None)
  Receive Date: 20090917
  Receipt Date: 20090915
  Transmission Date: 20100115
  Serious: Yes (Hospitalization)
  Sender: FDA-Public Use
  Company Number: A0807428A

PATIENT
  Age: 61 Year
  Sex: Male

DRUGS (17)
  1. ADVAIR HFA [Suspect]
     Indication: PNEUMONIA
     Route: 055
     Dates: start: 20090201, end: 20090901
  2. ALLOPURINOL [Concomitant]
  3. COREG [Concomitant]
  4. TOPROL-XL [Concomitant]
  5. NITROGLYCERIN [Concomitant]
  6. CATAPRES [Concomitant]
  7. PLAVIX [Concomitant]
  8. LISINOPRIL [Concomitant]
  9. LOVASTATIN [Concomitant]
  10. LANTUS [Concomitant]
  11. NOVOLOG [Concomitant]
  12. XANAX [Concomitant]
  13. DARVOCET [Concomitant]
  14. TYLENOL (CAPLET) [Concomitant]
  15. BENADRYL [Concomitant]
  16. CLARITIN [Concomitant]
  17. LASIX [Concomitant]

REACTIONS (9)
  - BLOOD GLUCOSE INCREASED [None]
  - BLOOD PRESSURE INCREASED [None]
  - CHOKING SENSATION [None]
  - CONJUNCTIVITIS INFECTIVE [None]
  - DRY SKIN [None]
  - DYSGEUSIA [None]
  - DYSPHAGIA [None]
  - DYSPHONIA [None]
  - SECRETION DISCHARGE [None]
